FAERS Safety Report 21086491 (Version 1)
Quarter: 2022Q3

REPORT INFORMATION
  Report Type: Spontaneous
  Country: FR (occurrence: FR)
  Receive Date: 20220715
  Receipt Date: 20220715
  Transmission Date: 20221026
  Serious: Yes (Life-Threatening, Other)
  Sender: FDA-Public Use
  Company Number: FR-AFSSAPS-PC20221964

PATIENT
  Age: 43 Year
  Sex: Female

DRUGS (1)
  1. CIPROFLOXACIN [Suspect]
     Active Substance: CIPROFLOXACIN
     Indication: Pyelonephritis
     Dosage: 200 MILLIGRAM, ONCE A DAY
     Route: 065
     Dates: start: 20220514

REACTIONS (1)
  - Quadriplegia [Recovered/Resolved]

NARRATIVE: CASE EVENT DATE: 20220516
